FAERS Safety Report 8718298 (Version 2)
Quarter: 2012Q4

REPORT INFORMATION
  Report Type: Report from Study
  Country: IL (occurrence: IL)
  Receive Date: 20120810
  Receipt Date: 20120917
  Transmission Date: 20130627
  Serious: Yes (Life-Threatening, Hospitalization)
  Sender: FDA-Public Use
  Company Number: IL-GLAXOSMITHKLINE-Z0016343B

PATIENT
  Age: 63 Year
  Sex: Male
  Weight: 78.4 kg

DRUGS (1)
  1. OFATUMUMAB [Suspect]
     Indication: CHRONIC LYMPHOCYTIC LEUKAEMIA REFRACTORY
     Route: 042
     Dates: start: 20120523

REACTIONS (1)
  - Ventricular tachycardia [Recovered/Resolved with Sequelae]
